FAERS Safety Report 5329299-4 (Version None)
Quarter: 2007Q2

REPORT INFORMATION
  Report Type: 
  Country: None (occurrence: None)
  Receive Date: 20070518
  Receipt Date: 20070507
  Transmission Date: 20071010
  Serious: Yes (Other)
  Sender: FDA-Public Use
  Company Number: US-PFIZER INC-2007038012

PATIENT
  Sex: Female
  Weight: 79.4 kg

DRUGS (4)
  1. NEURONTIN [Suspect]
     Dates: start: 20030501, end: 20031001
  2. NEXIUM [Concomitant]
  3. LEVOTHYROXINE SODIUM [Concomitant]
     Dosage: DAILY DOSE:100MCG
  4. ZOLOFT [Concomitant]
     Dosage: DAILY DOSE:200MG

REACTIONS (11)
  - ANXIETY DISORDER [None]
  - BIPOLAR DISORDER [None]
  - DEPRESSION [None]
  - HALLUCINATION [None]
  - INSOMNIA [None]
  - PARAESTHESIA [None]
  - PARANOIA [None]
  - PSYCHOTIC DISORDER [None]
  - SELF-MEDICATION [None]
  - SUICIDE ATTEMPT [None]
  - WEIGHT DECREASED [None]
